FAERS Safety Report 6149296-9 (Version None)
Quarter: 2009Q2

REPORT INFORMATION
  Report Type: 
  Country: None (occurrence: None)
  Receive Date: 20090407
  Receipt Date: 20090317
  Transmission Date: 20091009
  Serious: Yes (Hospitalization, Other)
  Sender: FDA-Public Use
  Company Number: 2009S1004705

PATIENT
  Age: 47 Year
  Sex: Male

DRUGS (2)
  1. TEMAZEPAM [Suspect]
     Indication: DEPRESSION
     Dosage: 200 MG;ONCE
  2. CITALOPRAM HYDROBROMIDE [Concomitant]

REACTIONS (6)
  - APNOEA [None]
  - GRAND MAL CONVULSION [None]
  - LOSS OF CONSCIOUSNESS [None]
  - MENINGITIS TUBERCULOUS [None]
  - OVERDOSE [None]
  - PNEUMONIA ASPIRATION [None]
